FAERS Safety Report 12214532 (Version 1)
Quarter: 2016Q1

REPORT INFORMATION
  Report Type: Spontaneous
  Country: US (occurrence: US)
  Receive Date: 20160328
  Receipt Date: 20160328
  Transmission Date: 20160526
  Serious: Yes (Hospitalization, Other)
  Sender: FDA-Public Use
  Company Number: US-ASTELLAS-2016US010861

PATIENT
  Age: 16 Year
  Sex: Female

DRUGS (16)
  1. MYCOPHENOLATE MOFETIL. [Concomitant]
     Active Substance: MYCOPHENOLATE MOFETIL
     Indication: INTESTINAL TRANSPLANT
  2. FLUDARABINE [Concomitant]
     Active Substance: FLUDARABINE PHOSPHATE
     Indication: CORD BLOOD TRANSPLANT THERAPY
     Dosage: UNK UNK, UNKNOWN FREQ.
     Route: 065
  3. MELPHALAN [Concomitant]
     Active Substance: MELPHALAN
     Indication: CORD BLOOD TRANSPLANT THERAPY
     Dosage: UNK UNK, UNKNOWN FREQ.
     Route: 065
  4. TACROLIMUS. [Suspect]
     Active Substance: TACROLIMUS
     Indication: CORD BLOOD TRANSPLANT THERAPY
     Dosage: UNK, UNKNOWN FREQ.
     Route: 065
  5. FLUDARABINE [Concomitant]
     Active Substance: FLUDARABINE PHOSPHATE
     Indication: INTESTINAL TRANSPLANT
  6. MELPHALAN [Concomitant]
     Active Substance: MELPHALAN
     Indication: INTESTINAL TRANSPLANT
  7. ALTEZUMAB [Concomitant]
     Indication: INTESTINAL TRANSPLANT
  8. ALTEZUMAB [Concomitant]
     Indication: CORD BLOOD TRANSPLANT THERAPY
     Dosage: UNK UNK, UNKNOWN FREQ.
     Route: 065
  9. TACROLIMUS. [Suspect]
     Active Substance: TACROLIMUS
     Indication: INTESTINAL TRANSPLANT
  10. HYDROXYUREA. [Concomitant]
     Active Substance: HYDROXYUREA
     Indication: CORD BLOOD TRANSPLANT THERAPY
     Dosage: UNK UNK, UNKNOWN FREQ.
     Route: 065
  11. BASILIXIMAB [Concomitant]
     Active Substance: BASILIXIMAB
     Indication: CORD BLOOD TRANSPLANT THERAPY
     Dosage: UNK UNK, UNKNOWN FREQ.
     Route: 065
  12. BASILIXIMAB [Concomitant]
     Active Substance: BASILIXIMAB
     Indication: INTESTINAL TRANSPLANT
  13. MYCOPHENOLATE MOFETIL. [Concomitant]
     Active Substance: MYCOPHENOLATE MOFETIL
     Indication: CORD BLOOD TRANSPLANT THERAPY
     Dosage: UNK UNK, UNKNOWN FREQ.
     Route: 065
  14. HYDROXYUREA. [Concomitant]
     Active Substance: HYDROXYUREA
     Indication: INTESTINAL TRANSPLANT
  15. THIOTEPA. [Concomitant]
     Active Substance: THIOTEPA
     Indication: CORD BLOOD TRANSPLANT THERAPY
     Dosage: UNK UNK, UNKNOWN FREQ.
     Route: 065
  16. THIOTEPA. [Concomitant]
     Active Substance: THIOTEPA
     Indication: INTESTINAL TRANSPLANT

REACTIONS (8)
  - Transplant rejection [Recovered/Resolved]
  - Enteritis [Recovered/Resolved]
  - Cytomegalovirus viraemia [Recovered/Resolved]
  - Graft versus host disease [Recovered/Resolved]
  - Off label use [Unknown]
  - Enterocutaneous fistula [Recovered/Resolved]
  - Pneumonia [Recovered/Resolved]
  - Intestinal haemorrhage [Recovered/Resolved]
